FAERS Safety Report 7821103-5 (Version None)
Quarter: 2011Q4

REPORT INFORMATION
  Report Type: 
  Country: None (occurrence: None)
  Receive Date: 20111018
  Receipt Date: 20111012
  Transmission Date: 20120403
  Serious: No
  Sender: FDA-Public Use
  Company Number: US-PFIZER INC-2011243438

PATIENT
  Age: 51 Year
  Sex: Male

DRUGS (1)
  1. IBUPROFEN (ADVIL) [Suspect]
     Dosage: 2 DF, UNK
     Route: 065

REACTIONS (5)
  - WEIGHT DECREASED [None]
  - MALAISE [None]
  - BLOOD COUNT ABNORMAL [None]
  - LIVER FUNCTION TEST ABNORMAL [None]
  - INFLUENZA [None]
